FAERS Safety Report 14973694 (Version 1)
Quarter: 2018Q2

REPORT INFORMATION
  Report Type: Spontaneous
  Country: BR (occurrence: BR)
  Receive Date: 20180605
  Receipt Date: 20180605
  Transmission Date: 20180711
  Serious: Yes (Other)
  Sender: FDA-Public Use
  Company Number: BR-SA-2018SA144042

PATIENT
  Sex: Male

DRUGS (6)
  1. HYDROCORTISONE. [Concomitant]
     Active Substance: HYDROCORTISONE
     Dosage: 300 MG, QD
     Route: 042
     Dates: start: 20180522, end: 20180522
  2. RANITIDINE. [Concomitant]
     Active Substance: RANITIDINE
     Dosage: 100 MG, QD
     Route: 042
     Dates: start: 20180522
  3. BENADRYL A [Concomitant]
     Active Substance: DIPHENHYDRAMINE HYDROCHLORIDE
     Dosage: 50 MG, QD
     Route: 042
     Dates: start: 20180522, end: 20180522
  4. THYMOGLOBULINE [Suspect]
     Active Substance: LAPINE T-LYMPHOCYTE IMMUNE GLOBULIN
     Dosage: 250 MG, QD
     Route: 042
     Dates: start: 20180522, end: 20180523
  5. METAMIZOLE [Concomitant]
     Active Substance: METAMIZOLE
     Dosage: 1000 MG, QD
     Dates: start: 20180522, end: 20180522
  6. CEFAZOLINE [CEFAZOLIN] [Concomitant]
     Dosage: 1 G, TID
     Route: 042
     Dates: start: 20180522, end: 20180523

REACTIONS (2)
  - Tachycardia [Unknown]
  - Muscle twitching [Unknown]
